FAERS Safety Report 5688313-7 (Version None)
Quarter: 2008Q1

REPORT INFORMATION
  Report Type: 
  Country: None (occurrence: None)
  Receive Date: 20080328
  Receipt Date: 20080328
  Transmission Date: 20080703
  Serious: Yes (Other)
  Sender: FDA-Public Use
  Company Number: None

PATIENT
  Sex: Male
  Weight: 63.5036 kg

DRUGS (4)
  1. SINGULAIR [Suspect]
     Indication: ASTHMA
     Dosage: 10 MG 1 PER DAY PO
     Route: 048
     Dates: start: 20070613, end: 20080325
  2. WELLBUTRIN [Suspect]
     Indication: DEPRESSION
     Dosage: 200MG 2 PER DAY PO
     Route: 048
     Dates: start: 20061113, end: 20080221
  3. SEREVENT [Concomitant]
  4. FLOVENT [Concomitant]

REACTIONS (4)
  - CONVULSION [None]
  - DEPRESSION [None]
  - SUICIDAL IDEATION [None]
  - TREMOR [None]
